FAERS Safety Report 9758545 (Version 1)
Quarter: 2013Q4

REPORT INFORMATION
  Report Type: Spontaneous
  Country: US (occurrence: None)
  Receive Date: 20131216
  Receipt Date: 20131216
  Transmission Date: 20140711
  Serious: No
  Sender: FDA-Public Use
  Company Number: CABO-13002446

PATIENT
  Age: 78 Year
  Sex: Male

DRUGS (1)
  1. COMETRIQ (CABOZANTINIB) CAPSULE [Suspect]
     Indication: PROSTATE CANCER
     Dosage: 100 MG, QD, ORAL?80 MG,QD, ORAL?60 MG, QD, ORAL

REACTIONS (14)
  - Myalgia [None]
  - Malaise [None]
  - Blood pressure increased [None]
  - Diarrhoea [None]
  - Nausea [None]
  - Dysgeusia [None]
  - Asthenia [None]
  - Fatigue [None]
  - Weight decreased [None]
  - Stomatitis [None]
  - Dehydration [None]
  - Tongue ulceration [None]
  - Oropharyngeal pain [None]
  - Abdominal discomfort [None]
